FAERS Safety Report 4355421-2 (Version None)
Quarter: 2004Q2

REPORT INFORMATION
  Report Type: 
  Country: None (occurrence: None)
  Receive Date: 20040505
  Receipt Date: 20040422
  Transmission Date: 20050107
  Serious: Yes (Hospitalization)
  Sender: FDA-Public Use
  Company Number: 2004210773JP

PATIENT

DRUGS (1)
  1. HALCION [Suspect]
     Dosage: UNK, UNK, ORAL
     Route: 048

REACTIONS (2)
  - PYREXIA [None]
  - UNEVALUABLE EVENT [None]
